FAERS Safety Report 24686528 (Version 1)
Quarter: 2024Q4

REPORT INFORMATION
  Report Type: Spontaneous
  Country: US (occurrence: US)
  Receive Date: 20241202
  Receipt Date: 20241202
  Transmission Date: 20250115
  Serious: Yes (Other)
  Sender: ALEMBIC
  Company Number: US-ALEMBIC PHARMACUETICALS LIMITED-2024SCAL001724

PATIENT

DRUGS (1)
  1. MIDODRINE HYDROCHLORIDE [Suspect]
     Active Substance: MIDODRINE HYDROCHLORIDE
     Indication: Hypotension
     Dosage: 10 MG, TID
     Route: 065

REACTIONS (6)
  - Vascular injury [Unknown]
  - Peripheral ischaemia [Unknown]
  - Dry gangrene [Unknown]
  - Ankle brachial index decreased [Unknown]
  - Skin discolouration [Unknown]
  - Hypoaesthesia [Unknown]
